FAERS Safety Report 6750422-9 (Version None)
Quarter: 2010Q2

REPORT INFORMATION
  Report Type: 
  Country: None (occurrence: None)
  Receive Date: 20100601
  Receipt Date: 20100519
  Transmission Date: 20101027
  Serious: Yes (Hospitalization)
  Sender: FDA-Public Use
  Company Number: CA-ELI_LILLY_AND_COMPANY-CA201005005466

PATIENT
  Age: 75 Year
  Sex: Female

DRUGS (2)
  1. ZYPREXA [Suspect]
  2. EFFEXOR [Concomitant]
     Dosage: 75 MG, DAILY (1/D)
     Route: 048
     Dates: start: 20090101

REACTIONS (2)
  - FALL [None]
  - GAIT DISTURBANCE [None]
